FAERS Safety Report 7972044-4 (Version None)
Quarter: 2011Q4

REPORT INFORMATION
  Report Type: 
  Country: None (occurrence: None)
  Receive Date: 20111212
  Receipt Date: 20111130
  Transmission Date: 20120403
  Serious: Yes (Hospitalization)
  Sender: FDA-Public Use
  Company Number: US-ELI_LILLY_AND_COMPANY-US201106005487

PATIENT
  Sex: Female

DRUGS (8)
  1. FORTEO [Suspect]
     Indication: OSTEOPOROSIS
     Dosage: 20 UG, QD
     Route: 065
  2. PAXIL [Concomitant]
  3. TOPRAL [Concomitant]
  4. MOBIC [Concomitant]
  5. SKELAXIN [Concomitant]
  6. METFORMIN HCL [Concomitant]
  7. LUMIGAN [Concomitant]
  8. NEXIUM [Concomitant]

REACTIONS (2)
  - DIVERTICULITIS [None]
  - INJECTION SITE ERYTHEMA [None]
